FAERS Safety Report 15314846 (Version 1)
Quarter: 2018Q3

REPORT INFORMATION
  Report Type: Spontaneous
  Country: US (occurrence: US)
  Receive Date: 20180815
  Receipt Date: 20180815
  Transmission Date: 20181010
  Serious: Yes (Life-Threatening, Disabling, Other)
  Sender: FDA-Public Use
  Company Number: None

PATIENT
  Age: 41 Year
  Sex: Female
  Weight: 135 kg

DRUGS (3)
  1. SYNTHROID [Concomitant]
     Active Substance: LEVOTHYROXINE SODIUM
  2. LEVOTHYROXIN [Suspect]
     Active Substance: LEVOTHYROXINE
     Indication: HYPERTHYROIDISM
     Dosage: ?          OTHER STRENGTH:MCG;QUANTITY:90 TABLET(S);?
     Route: 048
     Dates: start: 20170109, end: 20180419
  3. LEVOTHYROXIN [Suspect]
     Active Substance: LEVOTHYROXINE
     Indication: BASEDOW^S DISEASE
     Dosage: ?          OTHER STRENGTH:MCG;QUANTITY:90 TABLET(S);?
     Route: 048
     Dates: start: 20170109, end: 20180419

REACTIONS (6)
  - Haemorrhage [None]
  - Feeling abnormal [None]
  - Angina pectoris [None]
  - Back disorder [None]
  - Palpitations [None]
  - Asthenia [None]

NARRATIVE: CASE EVENT DATE: 20180705
